FAERS Safety Report 7388594-8 (Version None)
Quarter: 2011Q2

REPORT INFORMATION
  Report Type: 
  Country: None (occurrence: None)
  Receive Date: 20110401
  Receipt Date: 20110318
  Transmission Date: 20111010
  Serious: Yes (Other)
  Sender: FDA-Public Use
  Company Number: BR-JNJFOC-20110308637

PATIENT
  Age: 59 Year
  Sex: Female

DRUGS (7)
  1. CALCIUM AND VITAMIN D [Concomitant]
     Indication: RHEUMATOID ARTHRITIS
  2. REMICADE [Suspect]
     Indication: RHEUMATOID ARTHRITIS
     Route: 042
  3. PARACETAMOL [Suspect]
  4. PARACETAMOL [Suspect]
     Indication: PYREXIA
  5. PREDNISOLONE [Concomitant]
     Indication: RHEUMATOID ARTHRITIS
  6. OMEPRAZOLE [Concomitant]
     Indication: GASTRITIS
  7. SALBUTAMOL [Concomitant]
     Indication: BRONCHOSPASM

REACTIONS (6)
  - CHEST PAIN [None]
  - BACK PAIN [None]
  - PYREXIA [None]
  - SWELLING FACE [None]
  - FEELING ABNORMAL [None]
  - HYPERSENSITIVITY [None]
